FAERS Safety Report 9171523 (Version 2)
Quarter: 2013Q1

REPORT INFORMATION
  Report Type: Spontaneous
  Country: IT (occurrence: DE)
  Receive Date: 20130319
  Receipt Date: 20130325
  Transmission Date: 20140127
  Serious: Yes (Other)
  Sender: FDA-Public Use
  Company Number: DE-FRI-1000043457

PATIENT
  Age: 85 Year
  Sex: Female
  Weight: 65 kg

DRUGS (6)
  1. FOSFOMYCIN [Suspect]
     Indication: URINARY TRACT INFECTION
     Dosage: 3000 MG
     Route: 048
     Dates: start: 20130209, end: 20130209
  2. METFORMIN [Concomitant]
     Indication: DIABETES MELLITUS
  3. NOVONORM [Concomitant]
     Indication: DIABETES MELLITUS
  4. BISOPROLOL [Concomitant]
     Indication: HYPERTENSION
  5. CALCIGEN [Concomitant]
     Indication: OSTEOPOROSIS
  6. OMEPRAZOLE [Concomitant]

REACTIONS (3)
  - Oedema peripheral [Recovered/Resolved]
  - Rash generalised [Recovered/Resolved]
  - Pruritus [Recovered/Resolved]
